FAERS Safety Report 9593018 (Version 1)
Quarter: 2013Q3

REPORT INFORMATION
  Report Type: Spontaneous
  Country: US (occurrence: None)
  Receive Date: 20130930
  Receipt Date: 20130930
  Transmission Date: 20140515
  Serious: Yes (Other)
  Sender: FDA-Public Use
  Company Number: 1000047484

PATIENT
  Age: 42 Year
  Sex: Female

DRUGS (2)
  1. LINZESS [Suspect]
     Indication: IRRITABLE BOWEL SYNDROME
     Dosage: 145MCG (145 MCG, 1 IN 1 D), ORAL
     Route: 048
     Dates: start: 20130720, end: 20130731
  2. WARFARIN (WARFARIN) (WARFARIN) [Concomitant]

REACTIONS (2)
  - Drug ineffective [None]
  - Swelling [None]
